FAERS Safety Report 24443635 (Version 2)
Quarter: 2024Q4

REPORT INFORMATION
  Report Type: Report from Study
  Country: CA (occurrence: CA)
  Receive Date: 20241016
  Receipt Date: 20241017
  Transmission Date: 20250114
  Serious: No
  Sender: ROCHE
  Company Number: CA-ROCHE-1818814

PATIENT
  Age: 52 Year
  Sex: Female
  Weight: 95.0 kg

DRUGS (25)
  1. RITUXAN [Suspect]
     Active Substance: RITUXIMAB
     Indication: Rheumatoid arthritis
     Dosage: PREVIOUS RITUXAN INFUSION WAS ADMINISTERED ON 21/NOV/2022? FREQUENCY TEXT:DAY 1,15
     Route: 042
     Dates: start: 20151111
  2. RITUXAN [Suspect]
     Active Substance: RITUXIMAB
     Route: 042
  3. RITUXAN [Suspect]
     Active Substance: RITUXIMAB
     Route: 042
  4. RITUXAN [Suspect]
     Active Substance: RITUXIMAB
     Route: 042
  5. RITUXAN [Suspect]
     Active Substance: RITUXIMAB
     Route: 042
  6. RITUXAN [Suspect]
     Active Substance: RITUXIMAB
     Route: 042
  7. RITUXAN [Suspect]
     Active Substance: RITUXIMAB
     Route: 042
  8. RITUXAN [Suspect]
     Active Substance: RITUXIMAB
     Route: 042
  9. RITUXAN [Suspect]
     Active Substance: RITUXIMAB
     Route: 042
  10. RITUXAN [Suspect]
     Active Substance: RITUXIMAB
     Route: 042
  11. RITUXAN [Suspect]
     Active Substance: RITUXIMAB
     Route: 042
  12. RITUXAN [Suspect]
     Active Substance: RITUXIMAB
     Route: 042
  13. RITUXAN [Suspect]
     Active Substance: RITUXIMAB
     Route: 042
  14. RITUXAN [Suspect]
     Active Substance: RITUXIMAB
     Route: 042
  15. METHOTREXATE [Concomitant]
     Active Substance: METHOTREXATE
  16. ACTONEL [Concomitant]
     Active Substance: RISEDRONATE SODIUM
  17. CELEBREX [Concomitant]
     Active Substance: CELECOXIB
  18. ATORVASTATIN [Concomitant]
     Active Substance: ATORVASTATIN
  19. FOLIC ACID [Concomitant]
     Active Substance: FOLIC ACID
  20. PERINDOPRIL [Concomitant]
     Active Substance: PERINDOPRIL
  21. PREDNISONE [Concomitant]
     Active Substance: PREDNISONE
  22. TYLENOL [Concomitant]
     Active Substance: ACETAMINOPHEN
     Indication: Premedication
     Route: 048
     Dates: start: 20151111
  23. BENADRYL [Concomitant]
     Active Substance: DIPHENHYDRAMINE HYDROCHLORIDE
     Indication: Premedication
     Route: 048
     Dates: start: 20151111
  24. SOLU-MEDROL [Concomitant]
     Active Substance: METHYLPREDNISOLONE SODIUM SUCCINATE
     Indication: Premedication
     Route: 042
     Dates: start: 20151111
  25. ZOPICLONE [Concomitant]
     Active Substance: ZOPICLONE

REACTIONS (14)
  - Weight decreased [Unknown]
  - Nasopharyngitis [Unknown]
  - Blood pressure increased [Unknown]
  - Urticaria [Unknown]
  - Heart rate decreased [Unknown]
  - Oxygen saturation decreased [Unknown]
  - Blood pressure systolic abnormal [Unknown]
  - Blood pressure systolic increased [Unknown]
  - Blood pressure fluctuation [Unknown]
  - Body temperature decreased [Unknown]
  - Blood pressure diastolic abnormal [Unknown]
  - Cough [Recovered/Resolved]
  - Respiratory tract infection [Unknown]
  - Weight increased [Unknown]

NARRATIVE: CASE EVENT DATE: 20151111
